FAERS Safety Report 20449637 (Version 1)
Quarter: 2022Q1

REPORT INFORMATION
  Report Type: Spontaneous
  Country: GB (occurrence: GB)
  Receive Date: 20220209
  Receipt Date: 20220209
  Transmission Date: 20220423
  Serious: Yes (Other)
  Sender: FDA-Public Use
  Company Number: None

PATIENT
  Age: 29 Year
  Sex: Male
  Weight: 96 kg

DRUGS (12)
  1. DULOXETINE [Interacting]
     Active Substance: DULOXETINE
     Indication: Ill-defined disorder
     Dosage: UNK
     Dates: start: 20220124
  2. QUETIAPINE [Interacting]
     Active Substance: QUETIAPINE
     Indication: Ill-defined disorder
     Dosage: UNK, ONE AND HALF AT NIGHT, CAN TAKE A QUARTER TABLE...
     Dates: start: 20210609
  3. CANDESARTAN [Concomitant]
     Active Substance: CANDESARTAN
     Indication: Ill-defined disorder
     Dosage: UNK UNK, QD (TAKE ONE ONCE DAILY)
     Dates: start: 20210609
  4. BECLOMETHASONE DIPROPIONATE [Concomitant]
     Active Substance: BECLOMETHASONE DIPROPIONATE
     Indication: Ill-defined disorder
     Dosage: UNK UNK, BID (2 PUFFS TWICE A DAY VIA SPACER)
     Dates: start: 20210609
  5. DIAZEPAM [Concomitant]
     Active Substance: DIAZEPAM
     Indication: Ill-defined disorder
     Dosage: TAKE ONE OR TWO TABLET ONE HOUR BEFORE MRI
     Dates: start: 20211203, end: 20211217
  6. DULOXETINE [Concomitant]
     Active Substance: DULOXETINE
     Indication: Ill-defined disorder
     Dosage: TAKE DAILY (CAN START BY TAKING EVERY THREE DAY...
     Dates: start: 20220121
  7. FEXOFENADINE [Concomitant]
     Active Substance: FEXOFENADINE HYDROCHLORIDE
     Indication: Ill-defined disorder
     Dosage: UNK UNK, QD (TAKE ONE DAILY)
     Dates: start: 20210609
  8. FLUTICASONE PROPIONATE [Concomitant]
     Active Substance: FLUTICASONE PROPIONATE
     Indication: Ill-defined disorder
     Dosage: USE 1-2 TIMES/DAY
     Dates: start: 20211005
  9. METHYLPHENIDATE [Concomitant]
     Active Substance: METHYLPHENIDATE
     Indication: Ill-defined disorder
     Dosage: TAKE ONE OR TWO PER DAY FOR ADHD
     Dates: start: 20210609
  10. METHYLPHENIDATE [Concomitant]
     Active Substance: METHYLPHENIDATE
     Indication: Attention deficit hyperactivity disorder
  11. NITROFURANTOIN [Concomitant]
     Active Substance: NITROFURANTOIN
     Indication: Ill-defined disorder
     Dosage: UNK UNK, BID (TAKE ONE TWICE DAILY)
     Dates: start: 20211110, end: 20211117
  12. VENTOLIN [Concomitant]
     Active Substance: ALBUTEROL SULFATE
     Indication: Ill-defined disorder
     Dosage: INHALE 2 DOSES AS NEEDED
     Dates: start: 20210609

REACTIONS (2)
  - Serotonin syndrome [Recovering/Resolving]
  - Drug interaction [Unknown]

NARRATIVE: CASE EVENT DATE: 20220124
